FAERS Safety Report 9649173 (Version 2)
Quarter: 2013Q4

REPORT INFORMATION
  Report Type: Spontaneous
  Country: US (occurrence: US)
  Receive Date: 20131028
  Receipt Date: 20131028
  Transmission Date: 20140711
  Serious: No
  Sender: FDA-Public Use
  Company Number: -SAAVPROD-POMP-1002819

PATIENT
  Age: 27 Year
  Sex: Male
  Weight: 45.8 kg

DRUGS (2)
  1. ALGLUCOSIDASE ALFA [Suspect]
     Indication: GLYCOGEN STORAGE DISEASE TYPE II
     Dosage: 880 MG, Q2W
     Route: 042
     Dates: start: 2005
  2. ALGLUCOSIDASE ALFA [Suspect]
     Indication: GLYCOGEN STORAGE DISEASE TYPE II
     Dosage: 850 MG, ONCE
     Route: 042

REACTIONS (1)
  - Medication error [Unknown]
